FAERS Safety Report 14702336 (Version 3)
Quarter: 2018Q2

REPORT INFORMATION
  Report Type: Report from Study
  Country: None (occurrence: CA)
  Receive Date: 20180401
  Receipt Date: 20180504
  Transmission Date: 20180711
  Serious: Yes (Hospitalization, Other)
  Sender: FDA-Public Use
  Company Number: CA-ABBVIE-18K-028-2295924-00

PATIENT
  Age: 60 Year
  Sex: Female
  Weight: 53.12 kg

DRUGS (4)
  1. LEVOTHYROXINE. [Concomitant]
     Active Substance: LEVOTHYROXINE
     Indication: PRODUCT USED FOR UNKNOWN INDICATION
     Route: 048
  2. DUODOPA [Suspect]
     Active Substance: CARBIDOPA\LEVODOPA
     Indication: PARKINSON^S DISEASE
     Dosage: MORNING BOLUS: 10.5 ML  CONTINUOUS DOSE RATE: 4 ML/H  EXTRA DOSE: 2 ML
     Route: 050
     Dates: start: 20161224, end: 2018
  3. SEROQUEL [Concomitant]
     Active Substance: QUETIAPINE FUMARATE
     Indication: PRODUCT USED FOR UNKNOWN INDICATION
  4. DUODOPA [Suspect]
     Active Substance: CARBIDOPA\LEVODOPA
     Dosage: RESUMED DUODOPA
     Route: 050
     Dates: start: 2018

REACTIONS (4)
  - Osteomyelitis [Not Recovered/Not Resolved]
  - Infected skin ulcer [Not Recovered/Not Resolved]
  - Decubitus ulcer [Not Recovered/Not Resolved]
  - Device battery issue [Recovered/Resolved]

NARRATIVE: CASE EVENT DATE: 201803
